FAERS Safety Report 7682885-9 (Version None)
Quarter: 2011Q3

REPORT INFORMATION
  Report Type: 
  Country: None (occurrence: None)
  Receive Date: 20110815
  Receipt Date: 20110809
  Transmission Date: 20111222
  Serious: Yes (Other)
  Sender: FDA-Public Use
  Company Number: PL-ROCHE-795764

PATIENT
  Sex: Female

DRUGS (2)
  1. METOCARD [Concomitant]
  2. BONIVA [Suspect]
     Indication: OSTEOPOROSIS
     Dosage: DOSE: 3 MG/ML
     Route: 042
     Dates: start: 20110201, end: 20110501

REACTIONS (5)
  - BONE PAIN [None]
  - PAIN IN JAW [None]
  - EYE PAIN [None]
  - FACIAL PAIN [None]
  - ARTHRALGIA [None]
